FAERS Safety Report 6391827-8 (Version None)
Quarter: 2009Q4

REPORT INFORMATION
  Report Type: 
  Country: None (occurrence: None)
  Receive Date: 20091007
  Receipt Date: 20091002
  Transmission Date: 20100525
  Serious: Yes (Hospitalization)
  Sender: FDA-Public Use
  Company Number: JP-BAYER-200913396BYL

PATIENT
  Age: 54 Year
  Sex: Male

DRUGS (5)
  1. ASPIRIN [Suspect]
     Indication: THROMBOTIC CEREBRAL INFARCTION
     Route: 048
  2. CLOPIDOGREL [Suspect]
     Indication: THROMBOTIC CEREBRAL INFARCTION
     Route: 048
  3. ARGATROBAN [Concomitant]
     Indication: THROMBOTIC CEREBRAL INFARCTION
     Route: 042
  4. CILOSTAZOL [Concomitant]
     Indication: THROMBOTIC CEREBRAL INFARCTION
     Route: 048
  5. LANSOPRAZOLE [Concomitant]
     Indication: DRUG USE FOR UNKNOWN INDICATION
     Route: 048

REACTIONS (3)
  - ANAEMIA [None]
  - CEREBRAL INFARCTION [None]
  - DUODENAL ULCER HAEMORRHAGE [None]
